FAERS Safety Report 19950845 (Version 1)
Quarter: 2021Q4

REPORT INFORMATION
  Report Type: Spontaneous
  Country: CA (occurrence: CA)
  Receive Date: 20211013
  Receipt Date: 20211013
  Transmission Date: 20220303
  Serious: Yes (Life-Threatening, Other)
  Sender: FDA-Public Use
  Company Number: CA-TEVA-2021-CA-1963906

PATIENT
  Age: 11 Year
  Sex: Female

DRUGS (3)
  1. METHOTREXATE [Suspect]
     Active Substance: METHOTREXATE
     Indication: Osteosarcoma
     Route: 065
  2. METHOTREXATE [Suspect]
     Active Substance: METHOTREXATE
     Indication: Chemotherapy
     Route: 065
  3. LEUCOVORIN [Concomitant]
     Active Substance: LEUCOVORIN
     Route: 065

REACTIONS (5)
  - Acute kidney injury [Recovered/Resolved]
  - Hypervolaemia [Recovered/Resolved]
  - Nephropathy toxic [Recovered/Resolved]
  - Pulmonary oedema [Recovered/Resolved]
  - Toxicity to various agents [Recovered/Resolved]
